FAERS Safety Report 8990471 (Version 1)
Quarter: 2012Q4

REPORT INFORMATION
  Report Type: Report from Study
  Country: JP (occurrence: JP)
  Receive Date: 20121228
  Receipt Date: 20121228
  Transmission Date: 20130627
  Serious: Yes (Other)
  Sender: FDA-Public Use
  Company Number: JP-VERTEX PHARMACEUTICALS INC.-2012-026665

PATIENT
  Age: 51 Year
  Sex: Male

DRUGS (13)
  1. VX-950 (TELAPREVIR) [Suspect]
     Indication: CHRONIC HEPATITIS C
     Dosage: 1500 mg, qd
     Route: 048
     Dates: start: 20120704, end: 20120927
  2. PEGINTERFERON ALFA-2B [Suspect]
     Indication: CHRONIC HEPATITIS C
     Dosage: 1.5 ?g/kg, qw
     Route: 058
     Dates: start: 20120704, end: 20120711
  3. PEGINTERFERON ALFA-2B [Suspect]
     Dosage: 40 ?g, qw
     Route: 058
     Dates: start: 20120712
  4. PEGINTERFERON ALFA-2B [Suspect]
     Dosage: 60 ?g, qw
     Route: 058
     Dates: start: 20120719
  5. PEGINTERFERON ALFA-2B [Suspect]
     Dosage: 40 ?g, qw
     Route: 058
     Dates: start: 20120802
  6. PEGINTERFERON ALFA-2B [Suspect]
     Dosage: 60 ?g, qw
     Route: 058
     Dates: start: 20121009
  7. PEGINTERFERON ALFA-2B [Suspect]
     Dosage: 40 ?g, qw
     Route: 058
     Dates: start: 20121025, end: 20121213
  8. RIBAVIRIN [Concomitant]
     Dosage: 800 mg, qd
     Route: 048
     Dates: start: 20120704, end: 20121220
  9. JANUVIA [Concomitant]
     Dosage: 50 mg, qd
     Route: 048
  10. DEPAS [Concomitant]
     Dosage: 1.5 mg, qd
     Route: 048
  11. ZYLORIC [Concomitant]
     Dosage: 100 mg, qd
     Route: 048
     Dates: start: 20120704, end: 20120927
  12. MYSLEE [Concomitant]
     Dosage: 5 mg, qd
     Route: 048
     Dates: start: 20120704
  13. CALONAL [Concomitant]
     Dosage: 1200 mg, qd
     Route: 048
     Dates: start: 20120704, end: 20121220

REACTIONS (1)
  - Retinopathy [Recovered/Resolved]
